FAERS Safety Report 7536039-7 (Version None)
Quarter: 2011Q2

REPORT INFORMATION
  Report Type: 
  Country: None (occurrence: None)
  Receive Date: 20110609
  Receipt Date: 20110601
  Transmission Date: 20111010
  Serious: Yes (Disabling)
  Sender: FDA-Public Use
  Company Number: DK-ASTELLAS-2011EU000719

PATIENT
  Sex: Female
  Weight: 72 kg

DRUGS (4)
  1. STALEVO 100 [Concomitant]
     Indication: PARKINSON'S DISEASE
     Dosage: UNK
     Route: 065
  2. REQUIP [Concomitant]
     Indication: PARKINSON'S DISEASE
     Dosage: 8 MG, UNKNOWN/D
     Route: 065
  3. VESICARE [Suspect]
     Indication: HYPERTONIC BLADDER
     Dosage: 5 MG, UID/QD
     Route: 048
     Dates: start: 20101111, end: 20110125
  4. AZILECT [Concomitant]
     Indication: PARKINSON'S DISEASE
     Dosage: 1 MG, UNKNOWN/D
     Route: 065

REACTIONS (3)
  - VOMITING [None]
  - WEIGHT DECREASED [None]
  - NAUSEA [None]
